FAERS Safety Report 6963047-7 (Version None)
Quarter: 2010Q3

REPORT INFORMATION
  Report Type: 
  Country: None (occurrence: None)
  Receive Date: 20100902
  Receipt Date: 20100826
  Transmission Date: 20110219
  Serious: Yes (Hospitalization)
  Sender: FDA-Public Use
  Company Number: PT-ABBOTT-10P-130-0663545-00

PATIENT
  Age: 79 Year
  Sex: Female
  Weight: 85 kg

DRUGS (5)
  1. HUMIRA [Suspect]
     Indication: RHEUMATOID ARTHRITIS
     Route: 058
     Dates: start: 20100501, end: 20100801
  2. METHOTREXATE [Concomitant]
     Indication: RHEUMATOID ARTHRITIS
  3. CORTICOIDES [Concomitant]
     Indication: RHEUMATOID ARTHRITIS
  4. NSAID [Concomitant]
     Indication: RHEUMATOID ARTHRITIS
  5. FLUDEX [Concomitant]
     Indication: HYPERTENSION

REACTIONS (6)
  - ACUTE RESPIRATORY DISTRESS SYNDROME [None]
  - ESCHERICHIA URINARY TRACT INFECTION [None]
  - PNEUMONIA [None]
  - POLYMERASE CHAIN REACTION [None]
  - SEPSIS SYNDROME [None]
  - STEVENS-JOHNSON SYNDROME [None]
